FAERS Safety Report 21782851 (Version 1)
Quarter: 2022Q4

REPORT INFORMATION
  Report Type: Spontaneous
  Country: US (occurrence: None)
  Receive Date: 20221223
  Receipt Date: 20221223
  Transmission Date: 20230113
  Serious: No
  Sender: FDA-Public Use
  Company Number: None

PATIENT
  Sex: Female

DRUGS (1)
  1. OPSUMIT [Suspect]
     Active Substance: MACITENTAN
     Indication: Pulmonary arterial hypertension
     Dosage: FREQUENCY : DAILY;?
     Route: 048

REACTIONS (9)
  - Nausea [None]
  - Fatigue [None]
  - Decreased appetite [None]
  - Fluid retention [None]
  - Pain in extremity [None]
  - Chromaturia [None]
  - Dyspnoea [None]
  - Headache [None]
  - Therapy cessation [None]
